FAERS Safety Report 7179945-8 (Version None)
Quarter: 2010Q4

REPORT INFORMATION
  Report Type: 
  Country: None (occurrence: None)
  Receive Date: 20101221
  Receipt Date: 20101214
  Transmission Date: 20110411
  Serious: No
  Sender: FDA-Public Use
  Company Number: US-PFIZER INC-2010173757

PATIENT
  Age: 82 Year
  Sex: Female
  Weight: 67.12 kg

DRUGS (7)
  1. ADVIL [Suspect]
     Indication: BACK PAIN
     Dosage: 200 MG, 1X/DAY
     Route: 048
     Dates: start: 20101101, end: 20101101
  2. DIOVAN [Concomitant]
  3. CRESTOR [Concomitant]
  4. ACETYLSALICYLIC ACID [Concomitant]
  5. OSCAL [Concomitant]
  6. CENTRUM [Concomitant]
  7. VITAMIN B-12 [Concomitant]

REACTIONS (1)
  - DRUG INEFFECTIVE [None]
